FAERS Safety Report 8288527-6 (Version None)
Quarter: 2012Q2

REPORT INFORMATION
  Report Type: 
  Country: None (occurrence: None)
  Receive Date: 20120416
  Receipt Date: 20120404
  Transmission Date: 20120825
  Serious: Yes (Hospitalization)
  Sender: FDA-Public Use
  Company Number: JP-PFIZER INC-2012080948

PATIENT
  Age: 72 Year
  Sex: Female
  Weight: 56.45 kg

DRUGS (9)
  1. INDAPAMIDE [Suspect]
     Indication: HYPERTENSION
     Dosage: 1 MG, 1X/DAY
     Route: 048
  2. BROTIZOLAM [Concomitant]
     Indication: INSOMNIA
     Dosage: 0.25 MG, BEFORE SLEEPING
     Route: 048
  3. CANDESARTAN CILEXETIL [Suspect]
     Indication: HYPERTENSION
     Dosage: 8 MG, 1X/DAY
     Route: 048
  4. CRIZOTINIB [Suspect]
     Indication: NON-SMALL CELL LUNG CANCER
     Dosage: 250 MG, 2X/DAY
     Route: 048
     Dates: start: 20120111, end: 20120329
  5. SODIUM GUALENATE [Concomitant]
     Indication: PROPHYLAXIS
     Dosage: UNK
     Route: 047
  6. SP TROCHE [Concomitant]
     Indication: PROPHYLAXIS
     Dosage: 1 TABLET, AS NEEDED
     Route: 048
  7. LOPERAMIDE [Concomitant]
     Indication: DIARRHOEA
     Dosage: 2 MG, AS NEEDED
     Route: 048
  8. LANSOPRAZOLE [Concomitant]
     Indication: PROPHYLAXIS
     Dosage: 15 MG, 1X/DAY
     Route: 048
  9. SODIUM BICARBONATE [Concomitant]
     Indication: PROPHYLAXIS
     Dosage: UNK
     Route: 049

REACTIONS (2)
  - HYPONATRAEMIA [None]
  - FATIGUE [None]
